FAERS Safety Report 10012821 (Version 4)
Quarter: 2014Q2

REPORT INFORMATION
  Report Type: Report from Study
  Country: US (occurrence: US)
  Receive Date: 20140314
  Receipt Date: 20140416
  Transmission Date: 20141212
  Serious: Yes (Death, Hospitalization, Other)
  Sender: FDA-Public Use
  Company Number: US-JNJFOC-20140308410

PATIENT
  Age: 58 Year
  Sex: Male
  Weight: 65 kg

DRUGS (5)
  1. IMBRUVICA [Suspect]
     Indication: CHRONIC LYMPHOCYTIC LEUKAEMIA
     Route: 048
     Dates: start: 20131218, end: 20140320
  2. ASPIRIN [Concomitant]
  3. MEGESTROL [Concomitant]
  4. DEXAMETHASONE [Concomitant]
  5. PRAVASTATIN [Concomitant]

REACTIONS (13)
  - Renal failure acute [Fatal]
  - Pulmonary thrombosis [Unknown]
  - Pulmonary mass [Unknown]
  - Deep vein thrombosis [Unknown]
  - Wound [Unknown]
  - Decubitus ulcer [Unknown]
  - Neutropenic sepsis [Unknown]
  - Neutropenia [Recovering/Resolving]
  - Anaemia [Not Recovered/Not Resolved]
  - Systemic candida [Unknown]
  - Arthralgia [Unknown]
  - Myalgia [Unknown]
  - Pyrexia [Recovering/Resolving]
